FAERS Safety Report 5545485-2 (Version None)
Quarter: 2007Q4

REPORT INFORMATION
  Report Type: 
  Country: None (occurrence: None)
  Receive Date: 20071206
  Receipt Date: 20071121
  Transmission Date: 20080405
  Serious: Yes (Other)
  Sender: FDA-Public Use
  Company Number: 8028219

PATIENT
  Age: 24 Year
  Sex: Female
  Weight: 65 kg

DRUGS (2)
  1. KEPPRA [Suspect]
     Indication: EPILEPSY
  2. GABAPENTIN [Suspect]

REACTIONS (1)
  - DERMATITIS ALLERGIC [None]
